FAERS Safety Report 13619998 (Version 2)
Quarter: 2018Q4

REPORT INFORMATION
  Report Type: Spontaneous
  Country: JP (occurrence: JP)
  Receive Date: 20170607
  Receipt Date: 20181108
  Transmission Date: 20190204
  Serious: Yes (Death, Hospitalization)
  Sender: FDA-Public Use
  Company Number: JP-TEVA-690361ISR

PATIENT
  Age: 50 Year
  Sex: Male

DRUGS (3)
  1. SILECE [Concomitant]
     Active Substance: FLUNITRAZEPAM
     Indication: SLEEP DISORDER
     Route: 048
     Dates: start: 201605, end: 20160607
  2. CONTOMIN [Concomitant]
     Active Substance: CHLORPROMAZINE
     Indication: SLEEP DISORDER
     Route: 048
     Dates: start: 201605, end: 20160607
  3. MODIODAL TABLETS 100MG [Suspect]
     Active Substance: MODAFINIL
     Indication: SLEEP DISORDER
     Route: 048
     Dates: start: 20160518, end: 20160607

REACTIONS (3)
  - Drug reaction with eosinophilia and systemic symptoms [Fatal]
  - Cytomegalovirus infection [Fatal]
  - Pneumocystis jirovecii pneumonia [Fatal]

NARRATIVE: CASE EVENT DATE: 2016
